FAERS Safety Report 8136833-8 (Version None)
Quarter: 2012Q1

REPORT INFORMATION
  Report Type: 
  Country: None (occurrence: None)
  Receive Date: 20120214
  Receipt Date: 20120206
  Transmission Date: 20120608
  Serious: Yes (Hospitalization)
  Sender: FDA-Public Use
  Company Number: CA-CELGENEUS-028-C5013-11051435

PATIENT
  Sex: Female
  Weight: 64 kg

DRUGS (25)
  1. REVLIMID [Suspect]
     Indication: MULTIPLE MYELOMA
     Dosage: 15 MILLIGRAM
     Route: 048
     Dates: start: 20090630, end: 20110426
  2. RANITIDINE [Concomitant]
     Dosage: 150 MILLIGRAM
     Route: 048
     Dates: start: 20090728
  3. SALBUTOMOL SULPHATE [Concomitant]
     Dosage: PUFF FS
     Route: 055
     Dates: start: 20100101
  4. CYCLOPHOSPHAMIDE [Suspect]
     Indication: MULTIPLE MYELOMA
     Dosage: 100 MILLIGRAM/SQ. METER
     Route: 065
     Dates: start: 20090630, end: 20110426
  5. MACROBID [Concomitant]
     Route: 065
     Dates: start: 20110401
  6. QUININE SULFATE [Concomitant]
     Dosage: 300 MILLIGRAM
     Route: 048
     Dates: start: 20091020
  7. RANITIDINE [Concomitant]
  8. CENTRUM SELECT 50+ [Concomitant]
     Indication: VITAMIN SUPPLEMENTATION
     Dosage: 1 TABLET
     Route: 048
     Dates: start: 20080101
  9. AMITRIPTYLINE HCL [Concomitant]
     Indication: INSOMNIA
     Dosage: 10 MILLIGRAM
     Route: 048
     Dates: start: 20090630
  10. SEPTRA DS [Concomitant]
     Indication: INFECTION PROPHYLAXIS
     Dosage: 1 TABLET
     Route: 048
     Dates: start: 20100504
  11. FENTANYL CITRATE [Concomitant]
     Indication: PAIN MANAGEMENT
     Dosage: 2 MILLIGRAM
     Route: 065
     Dates: start: 20080101
  12. LATANOPROST [Concomitant]
     Indication: GLAUCOMA
     Dosage: EACH EYE
     Route: 047
     Dates: start: 20100101
  13. PREDNISONE TAB [Suspect]
     Indication: MULTIPLE MYELOMA
     Dosage: 50 MILLIGRAM
     Route: 065
     Dates: start: 20090630, end: 20110426
  14. ASPIRIN [Concomitant]
     Indication: THROMBOSIS PROPHYLAXIS
     Dosage: 81 MILLIGRAM
     Route: 048
     Dates: start: 20090101, end: 20110426
  15. VITAMIN B-12 [Concomitant]
     Indication: VITAMIN SUPPLEMENTATION
     Dosage: 1000 MILLIGRAM
     Route: 048
     Dates: start: 20080101
  16. TIMOLOL MALEATE [Concomitant]
     Dosage: 1 DROPS
     Route: 047
  17. HYDROMORPH CONTIN [Concomitant]
     Indication: PAIN MANAGEMENT
     Dosage: 3 MILLIGRAM
     Route: 048
     Dates: start: 20090630
  18. LEVAQUIN [Concomitant]
     Indication: PROPHYLAXIS
     Dosage: 500 MILLIGRAM
     Route: 048
  19. DECADRON [Concomitant]
     Dosage: 40 MILLIGRAM
     Route: 048
  20. KYTRIL [Concomitant]
     Indication: NAUSEA
     Dosage: 1 MILLIGRAM
     Route: 048
     Dates: start: 20090825, end: 20110426
  21. VITAMIN D [Concomitant]
     Indication: VITAMIN SUPPLEMENTATION
     Dosage: 1000 IU
     Route: 048
     Dates: start: 20080101
  22. IPRATROPIUM BROMIDE [Concomitant]
     Dosage: 0.3% CC PUFF FS
     Route: 045
     Dates: start: 20100101
  23. CRESTOR [Concomitant]
     Dosage: 5 MILLIGRAM
     Route: 048
     Dates: start: 20090101
  24. NEUPOGEN [Concomitant]
     Indication: NEUTROPENIA
     Dosage: 300 MILLIGRAM
     Route: 058
     Dates: start: 20100727
  25. TYLENOL W/ CODEINE NO. 3 [Concomitant]
     Indication: PAIN MANAGEMENT
     Dosage: 30 MILLIGRAM
     Route: 048
     Dates: start: 20080401

REACTIONS (1)
  - CYSTITIS HAEMORRHAGIC [None]
